FAERS Safety Report 4898763-4 (Version None)
Quarter: 2006Q1

REPORT INFORMATION
  Report Type: 
  Country: None (occurrence: None)
  Receive Date: 20060131
  Receipt Date: 20060117
  Transmission Date: 20060701
  Serious: Yes (Hospitalization)
  Sender: FDA-Public Use
  Company Number: 2006PV006709

PATIENT
  Age: 49 Year
  Sex: Male
  Weight: 116.5744 kg

DRUGS (16)
  1. BYETTA [Suspect]
     Indication: DIABETES MELLITUS NON-INSULIN-DEPENDENT
     Dosage: SEE IMAGE
     Route: 058
     Dates: start: 20051119, end: 20051218
  2. BYETTA [Suspect]
     Indication: DIABETES MELLITUS NON-INSULIN-DEPENDENT
     Dosage: SEE IMAGE
     Route: 058
     Dates: start: 20051219
  3. GLIPIZIDE [Concomitant]
  4. ATENOLOL [Concomitant]
  5. ALLOPURINOL [Concomitant]
  6. COZAAR [Concomitant]
  7. TRICOR [Concomitant]
  8. LIPITOR [Concomitant]
  9. RENAGEL [Concomitant]
  10. ASPIRIN [Concomitant]
  11. NIACIN [Concomitant]
  12. FOLIC ACID [Concomitant]
  13. IRON [Concomitant]
  14. EPOGEN [Concomitant]
  15. TEGRETOL [Concomitant]
  16. COUMADIN ^BOOTH^ [Concomitant]

REACTIONS (6)
  - ELECTROCARDIOGRAM ST SEGMENT ELEVATION [None]
  - FACTOR V DEFICIENCY [None]
  - PAIN IN JAW [None]
  - PERIPHERAL COLDNESS [None]
  - VENTRICULAR EXTRASYSTOLES [None]
  - VOMITING [None]
